FAERS Safety Report 6198967-7 (Version None)
Quarter: 2009Q2

REPORT INFORMATION
  Report Type: 
  Country: None (occurrence: None)
  Receive Date: 20090522
  Receipt Date: 20090514
  Transmission Date: 20091009
  Serious: Yes (Hospitalization, Disabling)
  Sender: FDA-Public Use
  Company Number: GB-TEVA-195021ISR

PATIENT
  Age: 58 Year
  Sex: Female

DRUGS (1)
  1. CARBOPLATIN [Suspect]
     Indication: OVARIAN CANCER
     Dosage: 1/21 DAYS
     Route: 042
     Dates: start: 20090123, end: 20090305

REACTIONS (5)
  - DIZZINESS [None]
  - DYSPNOEA [None]
  - LABYRINTHITIS [None]
  - NAUSEA [None]
  - VOMITING [None]
